FAERS Safety Report 14322690 (Version 3)
Quarter: 2018Q1

REPORT INFORMATION
  Report Type: Spontaneous
  Country: AU (occurrence: AU)
  Receive Date: 20171225
  Receipt Date: 20180228
  Transmission Date: 20180509
  Serious: Yes (Other)
  Sender: FDA-Public Use
  Company Number: PHHY2017AU189873

PATIENT
  Age: 79 Year
  Sex: Male
  Weight: 79.8 kg

DRUGS (2)
  1. PRAVASTATIN SANDOZ [Suspect]
     Active Substance: PRAVASTATIN
     Dosage: 80 MG, QD
     Route: 048
     Dates: start: 20171213
  2. PRAVASTATIN SANDOZ [Suspect]
     Active Substance: PRAVASTATIN
     Indication: BLOOD CHOLESTEROL ABNORMAL
     Dosage: 80 MG, QD
     Route: 048

REACTIONS (6)
  - Dyspnoea [Unknown]
  - Throat irritation [Not Recovered/Not Resolved]
  - Foreign body in respiratory tract [Unknown]
  - Choking [Recovered/Resolved]
  - Dysphagia [Recovered/Resolved]
  - Dysgeusia [Unknown]

NARRATIVE: CASE EVENT DATE: 20171213
